FAERS Safety Report 8271318-X (Version None)
Quarter: 2012Q2

REPORT INFORMATION
  Report Type: 
  Country: None (occurrence: None)
  Receive Date: 20120410
  Receipt Date: 20120330
  Transmission Date: 20120825
  Serious: Yes (Hospitalization)
  Sender: FDA-Public Use
  Company Number: ES-SANOFI-AVENTIS-2012SA020717

PATIENT
  Age: 62 Year
  Sex: Male
  Weight: 87 kg

DRUGS (14)
  1. CISPLATIN [Suspect]
     Indication: NON-SMALL CELL LUNG CANCER
     Route: 065
     Dates: start: 20120224, end: 20120224
  2. LISINOPRIL [Concomitant]
  3. EPLERENONE [Concomitant]
  4. BISOPROLOL FUMARATE [Concomitant]
  5. SINTROM [Concomitant]
  6. CARBOPLATIN [Suspect]
     Indication: NON-SMALL CELL LUNG CANCER
     Route: 042
     Dates: start: 20120315, end: 20120315
  7. FUROSEMIDE [Concomitant]
  8. CLOPIDOGREL [Concomitant]
  9. OMEPRAZOLE [Concomitant]
  10. ASPIRIN [Concomitant]
  11. AMIODARONE HCL [Concomitant]
  12. DOCETAXEL [Suspect]
     Indication: NON-SMALL CELL LUNG CANCER
     Route: 042
     Dates: start: 20120224, end: 20120224
  13. DOCETAXEL [Suspect]
     Route: 042
     Dates: start: 20120315, end: 20120315
  14. ATORVASTATIN CALCIUM [Concomitant]

REACTIONS (2)
  - HYPONATRAEMIA [None]
  - HYPOKALAEMIA [None]
